FAERS Safety Report 9422971 (Version 1)
Quarter: 2013Q3

REPORT INFORMATION
  Report Type: Spontaneous
  Country: ES (occurrence: ES)
  Receive Date: 20130726
  Receipt Date: 20130726
  Transmission Date: 20140515
  Serious: Yes (Hospitalization)
  Sender: FDA-Public Use
  Company Number: ES-JNJFOC-20130712493

PATIENT
  Age: 71 Year
  Sex: Male

DRUGS (1)
  1. ABCIXIMAB [Suspect]
     Indication: CORONARY ANGIOPLASTY
     Route: 042
     Dates: start: 20120511, end: 20120511

REACTIONS (3)
  - Thrombocytopenia [Recovered/Resolved]
  - Gingival bleeding [Unknown]
  - Ecchymosis [Unknown]
